FAERS Safety Report 16971868 (Version 1)
Quarter: 2019Q4

REPORT INFORMATION
  Report Type: Spontaneous
  Country: DK (occurrence: DK)
  Receive Date: 20191029
  Receipt Date: 20191029
  Transmission Date: 20200122
  Serious: Yes (Other)
  Sender: FDA-Public Use
  Company Number: NVSC2019DK015805

PATIENT
  Sex: Male

DRUGS (3)
  1. METOPROLOLSUCCINAT ^HEXAL^ [Suspect]
     Active Substance: METOPROLOL SUCCINATE
     Dosage: 100 MG (25 MG IN MORNING, 25 MG IN AFTERNOON AND 50 MG IN NIGHT)
     Route: 065
  2. METOPROLOLSUCCINAT ^HEXAL^ [Suspect]
     Active Substance: METOPROLOL SUCCINATE
     Indication: PRODUCT USED FOR UNKNOWN INDICATION
     Dosage: 50 MG, QD
     Route: 065
  3. XARELTO [Concomitant]
     Active Substance: RIVAROXABAN
     Indication: ANTICOAGULANT THERAPY
     Dosage: UNK
     Route: 065

REACTIONS (2)
  - Poor quality sleep [Unknown]
  - Sleep apnoea syndrome [Unknown]
